FAERS Safety Report 16029037 (Version 1)
Quarter: 2019Q2

REPORT INFORMATION
  Report Type: Spontaneous
  Country: US (occurrence: US)
  Receive Date: 20190302
  Receipt Date: 20190302
  Transmission Date: 20190711
  Serious: Yes (Hospitalization, Disabling)
  Sender: FDA-Public Use
  Company Number: None

PATIENT
  Age: 52 Year
  Sex: Female
  Weight: 72 kg

DRUGS (1)
  1. ROSUVASTATIN CALCIUM 10 MG [Suspect]
     Active Substance: ROSUVASTATIN CALCIUM
     Indication: CARDIAC DISORDER
     Dosage: ?          QUANTITY:1 TABLET(S);?
     Route: 048
     Dates: start: 20190222, end: 20190301

REACTIONS (10)
  - Ocular icterus [None]
  - Abdominal pain upper [None]
  - Asthenia [None]
  - Headache [None]
  - Myalgia [None]
  - Balance disorder [None]
  - Dizziness [None]
  - Paraesthesia [None]
  - Chest pain [None]
  - Memory impairment [None]

NARRATIVE: CASE EVENT DATE: 20190227
